FAERS Safety Report 14924339 (Version 2)
Quarter: 2018Q2

REPORT INFORMATION
  Report Type: Not Available
  Country: US (occurrence: US)
  Receive Date: 20180522
  Receipt Date: 20180608
  Transmission Date: 20180711
  Serious: Yes (Hospitalization)
  Sender: FDA-Public Use
  Company Number: US-NEUROCRINE BIOSCIENCES INC.-2018NBI01475

PATIENT
  Sex: Female

DRUGS (19)
  1. RESTASIS [Concomitant]
     Active Substance: CYCLOSPORINE
  2. POTASSIUM [Concomitant]
     Active Substance: POTASSIUM
  3. TRAZODONE [Concomitant]
     Active Substance: TRAZODONE HYDROCHLORIDE
  4. TRIHEXYPHENIDYL [Concomitant]
     Active Substance: TRIHEXYPHENIDYL
  5. ASPIRIN ADULT LOW DOSE [Concomitant]
     Active Substance: ASPIRIN
  6. PRILOSEC [Concomitant]
     Active Substance: OMEPRAZOLE MAGNESIUM
  7. CLOZAPINE. [Concomitant]
     Active Substance: CLOZAPINE
  8. PREDNISONE. [Concomitant]
     Active Substance: PREDNISONE
  9. ARICEPT [Concomitant]
     Active Substance: DONEPEZIL HYDROCHLORIDE
  10. INGREZZA [Suspect]
     Active Substance: VALBENAZINE
     Route: 048
     Dates: start: 20171027
  11. LASIX [Concomitant]
     Active Substance: FUROSEMIDE
  12. OXYBUTYNIN. [Concomitant]
     Active Substance: OXYBUTYNIN CHLORIDE
  13. INGREZZA [Suspect]
     Active Substance: VALBENAZINE
     Indication: TARDIVE DYSKINESIA
     Route: 048
     Dates: start: 20171019, end: 20171026
  14. MIRTAZAPINE. [Concomitant]
     Active Substance: MIRTAZAPINE
  15. VENTOLIN [Concomitant]
     Active Substance: ALBUTEROL SULFATE
  16. VITAMIN D [Concomitant]
     Active Substance: CHOLECALCIFEROL
  17. MIRAPEX [Concomitant]
     Active Substance: PRAMIPEXOLE DIHYDROCHLORIDE
  18. DULCOLAX NOS [Concomitant]
     Active Substance: BISACODYL OR DOCUSATE SODIUM
  19. VITAMIN B12 [Concomitant]
     Active Substance: CYANOCOBALAMIN

REACTIONS (1)
  - Schizophrenia [Recovering/Resolving]
